FAERS Safety Report 9448470 (Version 1)
Quarter: 2013Q3

REPORT INFORMATION
  Report Type: Spontaneous
  Country: US (occurrence: US)
  Receive Date: 20130808
  Receipt Date: 20130808
  Transmission Date: 20140515
  Serious: Yes (Other)
  Sender: FDA-Public Use
  Company Number: US-AMGEN-USASP2013054268

PATIENT
  Age: 46 Year
  Sex: Female
  Weight: 79.37 kg

DRUGS (8)
  1. ENBREL [Suspect]
     Indication: PRODUCT USED FOR UNKNOWN INDICATION
     Dosage: 25 MG, 2 TIMES/WK
     Route: 058
  2. METHOTREXATE [Suspect]
     Indication: PRODUCT USED FOR UNKNOWN INDICATION
     Dosage: 2.5 MG, UNK
     Route: 065
  3. PLAQUENIL /00072602/ [Suspect]
     Indication: PRODUCT USED FOR UNKNOWN INDICATION
     Dosage: UNK
     Route: 065
  4. TYLENOL WITH CODEINE NO.3 [Concomitant]
     Dosage: UNK
  5. PREDNISONE [Concomitant]
     Dosage: 10 MG, UNK
  6. LOESTRIN FE [Concomitant]
     Dosage: 1.5/30
  7. TRAMADOL HCL [Concomitant]
     Dosage: 50 MG, UNK
  8. WELLBUTRIN [Concomitant]
     Dosage: 75 MG, UNK

REACTIONS (3)
  - Eye infection [Recovering/Resolving]
  - Upper respiratory tract infection [Recovering/Resolving]
  - Drug ineffective [Recovering/Resolving]
